FAERS Safety Report 6583788-3 (Version None)
Quarter: 2010Q1

REPORT INFORMATION
  Report Type: 
  Country: None (occurrence: None)
  Receive Date: 20100213
  Receipt Date: 20100213
  Transmission Date: 20100710
  Serious: Yes (Other)
  Sender: FDA-Public Use
  Company Number: None

PATIENT
  Age: 67 Year
  Sex: Male
  Weight: 111.5849 kg

DRUGS (1)
  1. ACTOS [Suspect]
     Indication: INSULIN-REQUIRING TYPE 2 DIABETES MELLITUS
     Dosage: 1 PILL DAY PO
     Route: 048
     Dates: start: 20020815, end: 20100205

REACTIONS (3)
  - DYSPNOEA [None]
  - HEART RATE INCREASED [None]
  - JOINT SWELLING [None]
